FAERS Safety Report 7372770-4 (Version None)
Quarter: 2011Q1

REPORT INFORMATION
  Report Type: 
  Country: None (occurrence: None)
  Receive Date: 20110315
  Receipt Date: 20110228
  Transmission Date: 20110831
  Serious: Yes (Death, Hospitalization)
  Sender: FDA-Public Use
  Company Number: 023522

PATIENT
  Sex: Female
  Weight: 88 kg

DRUGS (7)
  1. ACEMETACIN [Concomitant]
  2. OMEPRAZOLE [Concomitant]
  3. ISOZID [Concomitant]
  4. ENALAPRIL [Concomitant]
  5. DECORTIN [Concomitant]
  6. CIMZIA [Suspect]
     Indication: RHEUMATOID ARTHRITIS
     Dosage: 200 MG 1X2 WEEKS, SUBCUTANEOUS
     Route: 058
     Dates: start: 20100501, end: 20101101
  7. MULTI-VITAMINS [Concomitant]

REACTIONS (19)
  - CEREBRAL ISCHAEMIA [None]
  - CHEST X-RAY ABNORMAL [None]
  - STAPHYLOCOCCAL SEPSIS [None]
  - HYPERTENSION [None]
  - GASTROENTERITIS [None]
  - HYPOKALAEMIA [None]
  - COAGULATION FACTOR DEFICIENCY [None]
  - AORTIC VALVE DISEASE [None]
  - GENERAL PHYSICAL HEALTH DETERIORATION [None]
  - ATRIAL FIBRILLATION [None]
  - POLYARTHRITIS [None]
  - PROTHROMBIN TIME PROLONGED [None]
  - CARDIOMEGALY [None]
  - RESTLESSNESS [None]
  - ACUTE RESPIRATORY FAILURE [None]
  - AORTIC ARTERIOSCLEROSIS [None]
  - PULMONARY CONGESTION [None]
  - ENDOCARDITIS [None]
  - EMBOLIC CEREBRAL INFARCTION [None]
